FAERS Safety Report 9040001 (Version 1)
Quarter: 2013Q1

REPORT INFORMATION
  Report Type: Spontaneous
  Country: NL (occurrence: NL)
  Receive Date: 20130130
  Receipt Date: 20130130
  Transmission Date: 20140127
  Serious: Yes (Hospitalization)
  Sender: FDA-Public Use
  Company Number: PHHY2013NL008217

PATIENT
  Sex: Male
  Weight: 70 kg

DRUGS (4)
  1. ZOMETA [Suspect]
     Indication: PATHOLOGICAL FRACTURE
     Dosage: 4MG, UKN
     Dates: start: 201207
  2. EVEROLIMUS [Interacting]
     Indication: RENAL CELL CARCINOMA
     Dosage: 10 MG, DAILY
     Dates: start: 201211
  3. METFORMIN HYDROCHLORIDE [Concomitant]
     Dosage: 2 DF (500MG) DAILY
     Dates: start: 2007, end: 20130102
  4. GLIMEPIRIDE [Concomitant]
     Dosage: 2 MG, DAILY
     Dates: start: 2008, end: 20130102

REACTIONS (2)
  - Renal failure acute [Not Recovered/Not Resolved]
  - Drug interaction [Not Recovered/Not Resolved]
